FAERS Safety Report 7983083-1 (Version None)
Quarter: 2011Q4

REPORT INFORMATION
  Report Type: 
  Country: None (occurrence: None)
  Receive Date: 20111215
  Receipt Date: 20111206
  Transmission Date: 20120403
  Serious: Yes (Hospitalization)
  Sender: FDA-Public Use
  Company Number: US-BAYER-2011-045341

PATIENT
  Age: 26 Year
  Sex: Female
  Weight: 63.492 kg

DRUGS (1)
  1. YASMIN [Suspect]
     Dosage: UNK
     Dates: start: 20060201, end: 20060301

REACTIONS (10)
  - CHOLELITHIASIS [None]
  - GALLBLADDER DISORDER [None]
  - ABDOMINAL PAIN [None]
  - ANXIETY [None]
  - CHOLECYSTITIS ACUTE [None]
  - PAIN [None]
  - CHOLECYSTITIS CHRONIC [None]
  - INJURY [None]
  - BILIARY COLIC [None]
  - GALLBLADDER INJURY [None]
